FAERS Safety Report 4434080-4 (Version None)
Quarter: 2004Q3

REPORT INFORMATION
  Report Type: 
  Country: None (occurrence: None)
  Receive Date: 20040825
  Receipt Date: 20040809
  Transmission Date: 20050211
  Serious: Yes (Hospitalization)
  Sender: FDA-Public Use
  Company Number: 702209

PATIENT
  Age: 42 Year
  Sex: Female
  Weight: 58.0604 kg

DRUGS (1)
  1. AMEVIVE [Suspect]
     Indication: PSORIASIS
     Dosage: 15 MG QW IM
     Dates: start: 20030528, end: 20030814

REACTIONS (1)
  - THYROID GLAND CANCER [None]
